FAERS Safety Report 18025117 (Version 13)
Quarter: 2025Q1

REPORT INFORMATION
  Report Type: Spontaneous
  Country: US (occurrence: US)
  Receive Date: 20200715
  Receipt Date: 20250225
  Transmission Date: 20250409
  Serious: Yes (Other)
  Sender: PFIZER
  Company Number: US-PFIZER INC-2020269396

PATIENT
  Age: 70 Year
  Sex: Female
  Weight: 67.13 kg

DRUGS (12)
  1. IBRANCE [Suspect]
     Active Substance: PALBOCICLIB
     Indication: Breast cancer metastatic
     Route: 048
     Dates: start: 2018
  2. IBRANCE [Suspect]
     Active Substance: PALBOCICLIB
     Indication: Invasive ductal breast carcinoma
     Route: 048
  3. IBRANCE [Suspect]
     Active Substance: PALBOCICLIB
     Route: 048
  4. IBRANCE [Suspect]
     Active Substance: PALBOCICLIB
     Route: 048
     Dates: start: 201808
  5. IBRANCE [Suspect]
     Active Substance: PALBOCICLIB
     Route: 048
  6. IBRANCE [Suspect]
     Active Substance: PALBOCICLIB
     Route: 048
  7. IBRANCE [Suspect]
     Active Substance: PALBOCICLIB
     Route: 048
  8. IBRANCE [Suspect]
     Active Substance: PALBOCICLIB
  9. FASLODEX [Concomitant]
     Active Substance: FULVESTRANT
     Dosage: IN EACH BUTT AND IT MONTHLY
     Dates: start: 2018
  10. CEPHALEXIN [Concomitant]
     Active Substance: CEPHALEXIN
     Indication: Urinary tract infection
     Dosage: HAS BEEN TAKING IT EVERY DAY
  11. GABAPENTIN [Concomitant]
     Active Substance: GABAPENTIN
     Indication: Pain
  12. DICLOFENAC SODIUM [Concomitant]
     Active Substance: DICLOFENAC SODIUM
     Indication: Pain in extremity
     Route: 061

REACTIONS (20)
  - Glaucoma [Unknown]
  - Loss of consciousness [Unknown]
  - Pain in extremity [Not Recovered/Not Resolved]
  - Bacterial test positive [Unknown]
  - Blood electrolytes abnormal [Unknown]
  - Constipation [Recovering/Resolving]
  - Fall [Recovering/Resolving]
  - Flatulence [Not Recovered/Not Resolved]
  - Fluid retention [Unknown]
  - Hyperhidrosis [Unknown]
  - Hypotension [Recovering/Resolving]
  - Pain of skin [Recovering/Resolving]
  - Peripheral swelling [Unknown]
  - Trichorrhexis [Not Recovered/Not Resolved]
  - Tumour marker increased [Unknown]
  - Alopecia [Not Recovered/Not Resolved]
  - Urinary tract infection [Unknown]
  - Anal incontinence [Unknown]
  - Blood potassium decreased [Unknown]
  - Diarrhoea [Unknown]

NARRATIVE: CASE EVENT DATE: 20180101
